FAERS Safety Report 8824102 (Version 1)
Quarter: 2012Q4

REPORT INFORMATION
  Report Type: 
  Country: None (occurrence: FR)
  Receive Date: 20121004
  Receipt Date: 20121004
  Transmission Date: 20130627
  Serious: Yes (Hospitalization, Other)
  Sender: FDA-Public Use
  Company Number: FR-ACCORD-014815

PATIENT
  Age: 73 Year
  Sex: Female

DRUGS (11)
  1. ACEBUTOLOL [Concomitant]
  2. METHYLPREDNISOLONE [Concomitant]
     Indication: PREMEDICATION
     Route: 042
  3. ONDANSETRON [Concomitant]
     Indication: PREMEDICATION
     Route: 042
  4. EUPANTOL [Concomitant]
  5. ALLOPURINOL [Concomitant]
  6. BROMAZEPAM [Concomitant]
  7. RANITIDINE [Concomitant]
     Indication: PREMEDICATION
     Route: 042
  8. POLARAMINE [Concomitant]
     Indication: PREMEDICATION
     Dosage: 1 ampoule
  9. PACLITAXEL [Suspect]
     Indication: OVARIAN CANCER
     Route: 042
     Dates: start: 20120510, end: 20120803
  10. BIPRETERAX [Concomitant]
  11. SPASFON [Concomitant]

REACTIONS (2)
  - Neuropathy peripheral [Not Recovered/Not Resolved]
  - Erythema [Not Recovered/Not Resolved]
